FAERS Safety Report 23083006 (Version 1)
Quarter: 2023Q4

REPORT INFORMATION
  Report Type: Spontaneous
  Country: DE (occurrence: DE)
  Receive Date: 20231019
  Receipt Date: 20231019
  Transmission Date: 20240109
  Serious: Yes (Other)
  Sender: FDA-Public Use
  Company Number: DE-BAYER-2023A147680

PATIENT
  Age: 37 Year
  Sex: Female

DRUGS (1)
  1. BETAFERON [Suspect]
     Active Substance: INTERFERON BETA-1B
     Indication: Multiple sclerosis
     Dosage: UNK
     Route: 058
     Dates: start: 2012, end: 20230927

REACTIONS (4)
  - Optic neuritis [Recovering/Resolving]
  - Multiple sclerosis relapse [Recovering/Resolving]
  - Monoparesis [Recovering/Resolving]
  - JC polyomavirus test positive [Recovering/Resolving]

NARRATIVE: CASE EVENT DATE: 20191001
